FAERS Safety Report 7287892-6 (Version None)
Quarter: 2011Q1

REPORT INFORMATION
  Report Type: 
  Country: None (occurrence: None)
  Receive Date: 20110211
  Receipt Date: 20101128
  Transmission Date: 20110831
  Serious: No
  Sender: FDA-Public Use
  Company Number: A0902897A

PATIENT
  Sex: Female

DRUGS (1)
  1. TREXIMET [Suspect]
     Indication: MIGRAINE
     Dosage: 1TAB UNKNOWN
     Route: 048

REACTIONS (1)
  - ULCER [None]
